FAERS Safety Report 8562162 (Version 2)
Quarter: 2012Q4

REPORT INFORMATION
  Report Type: 
  Country: US (occurrence: US)
  Receive Date: 20120515
  Receipt Date: 20121214
  Transmission Date: 20130627
  Serious: Yes (Hospitalization, Other)
  Sender: FDA-Public Use
  Company Number: US-BAYER-2012-046800

PATIENT
  Age: 44 Year
  Sex: Female
  Weight: 76.19 kg

DRUGS (1)
  1. YASMIN [Suspect]
     Indication: PERIMENOPAUSAL SYMPTOMS
     Dosage: UNK
     Dates: start: 20010723, end: 20011021

REACTIONS (20)
  - Pulmonary embolism [None]
  - Injury [None]
  - Pain [None]
  - General physical health deterioration [None]
  - Emotional distress [None]
  - Anxiety [None]
  - Shock [None]
  - Heart rate irregular [None]
  - Chest discomfort [None]
  - Blood pressure decreased [None]
  - Loss of consciousness [None]
  - Dyspnoea [None]
  - Dizziness [None]
  - Flank pain [None]
  - Back pain [None]
  - Mental disorder [None]
  - Fear [None]
  - Off label use [None]
  - Depression [None]
  - Bipolar disorder [None]
